FAERS Safety Report 5898934-4 (Version None)
Quarter: 2008Q3

REPORT INFORMATION
  Report Type: 
  Country: None (occurrence: None)
  Receive Date: 20080925
  Receipt Date: 20080913
  Transmission Date: 20090109
  Serious: Yes (Other)
  Sender: FDA-Public Use
  Company Number: US-PFIZER INC-2007040521

PATIENT
  Sex: Female
  Weight: 90.7 kg

DRUGS (10)
  1. CHANTIX [Suspect]
     Indication: SMOKING CESSATION THERAPY
     Route: 048
     Dates: start: 20070517, end: 20070101
  2. PROLIXIN [Concomitant]
  3. XOPENEX [Concomitant]
  4. AMBIEN [Concomitant]
     Indication: SLEEP DISORDER
  5. FLOVENT [Concomitant]
     Route: 055
  6. ATROVENT [Concomitant]
     Route: 055
  7. NEXIUM [Concomitant]
  8. MONTELUKAST SODIUM [Concomitant]
  9. EFFEXOR [Concomitant]
  10. CLONAZEPAM [Concomitant]

REACTIONS (3)
  - CHEST PAIN [None]
  - DEPRESSION [None]
  - SUICIDAL IDEATION [None]
